FAERS Safety Report 9077326 (Version 1)
Quarter: 2013Q1

REPORT INFORMATION
  Report Type: Report from Study
  Country: US (occurrence: US)
  Receive Date: 20130130
  Receipt Date: 20130130
  Transmission Date: 20140127
  Serious: No
  Sender: FDA-Public Use
  Company Number: US-ABBOTT-12P-163-0954426-00

PATIENT
  Age: 61 Year
  Sex: Male

DRUGS (6)
  1. HUMIRA 40 MG/0.8 ML PEN [Suspect]
     Indication: RHEUMATOID ARTHRITIS
     Dates: start: 20120503
  2. CALCIUM [Concomitant]
     Indication: BONE DISORDER
  3. FOLIC ACID [Concomitant]
     Indication: PRODUCT USED FOR UNKNOWN INDICATION
  4. NEURONTIN [Concomitant]
     Indication: NEURALGIA
  5. CLYANINE (THE MALARIA MEDICATION) [Concomitant]
     Indication: ARTHRITIS
  6. UNKNOWN STEROIDS [Concomitant]
     Indication: PAIN
     Dosage: 3 TABS AT A TIME AS NEEDED

REACTIONS (13)
  - Mobility decreased [Unknown]
  - Psoriasis [Not Recovered/Not Resolved]
  - Spinal pain [Unknown]
  - Rheumatoid arthritis [Not Recovered/Not Resolved]
  - Mobility decreased [Unknown]
  - Incorrect storage of drug [Unknown]
  - Poor quality drug administered [Unknown]
  - Purulence [Not Recovered/Not Resolved]
  - Joint swelling [Not Recovered/Not Resolved]
  - Insomnia [Not Recovered/Not Resolved]
  - Food aversion [Not Recovered/Not Resolved]
  - Productive cough [Not Recovered/Not Resolved]
  - Sputum discoloured [Not Recovered/Not Resolved]
